FAERS Safety Report 11234546 (Version 1)
Quarter: 2015Q3

REPORT INFORMATION
  Report Type: Spontaneous
  Country: AU (occurrence: AU)
  Receive Date: 20150702
  Receipt Date: 20150702
  Transmission Date: 20151125
  Serious: Yes (Other)
  Sender: FDA-Public Use
  Company Number: AU-ABBVIE-15K-008-1418711-00

PATIENT
  Age: 15 Year
  Sex: Male

DRUGS (1)
  1. HUMIRA [Suspect]
     Active Substance: ADALIMUMAB
     Indication: PRODUCT USED FOR UNKNOWN INDICATION
     Route: 065
     Dates: start: 201502

REACTIONS (2)
  - Pain [Unknown]
  - Injection site swelling [Unknown]

NARRATIVE: CASE EVENT DATE: 20150628
